FAERS Safety Report 8315406-8 (Version None)
Quarter: 2012Q2

REPORT INFORMATION
  Report Type: 
  Country: None (occurrence: None)
  Receive Date: 20120426
  Receipt Date: 20120416
  Transmission Date: 20120825
  Serious: Yes (Hospitalization)
  Sender: FDA-Public Use
  Company Number: US-CELGENEUS-163-21880-12041806

PATIENT
  Sex: Male
  Weight: 83.073 kg

DRUGS (12)
  1. LEVOTHYROXINE SODIUM [Concomitant]
     Dosage: 100 MICROGRAM
     Route: 048
  2. FLUCONAZOLE [Concomitant]
     Dosage: 100 MILLIGRAM
     Route: 048
  3. REVLIMID [Suspect]
     Dosage: 2.5 MILLIGRAM
     Route: 048
     Dates: start: 20120306
  4. ACYCLOVIR [Concomitant]
     Dosage: 400 MILLIGRAM
     Route: 048
  5. BACTRIM DS [Concomitant]
     Dosage: 1 TABLET
     Route: 048
  6. ALLOPURINOL [Concomitant]
     Dosage: 300 MILLIGRAM
     Route: 048
  7. METOPROLOL SUCCINATE [Concomitant]
     Dosage: 75 MILLIGRAM
     Route: 048
  8. ASPIRIN [Concomitant]
     Dosage: 81 MILLIGRAM
     Route: 048
  9. PREDNISONE [Concomitant]
     Dosage: 10 MILLIGRAM
     Route: 048
  10. REVLIMID [Suspect]
     Dosage: 5 MILLIGRAM
     Route: 048
     Dates: start: 20120410, end: 20120412
  11. RITUXIMAB [Suspect]
     Route: 065
  12. SEPTRA DS [Concomitant]
     Dosage: 1 TABLET
     Route: 048

REACTIONS (3)
  - SYSTEMIC INFLAMMATORY RESPONSE SYNDROME [None]
  - ATRIAL FIBRILLATION [None]
  - HYPOTENSION [None]
